FAERS Safety Report 9441052 (Version 4)
Quarter: 2013Q3

REPORT INFORMATION
  Report Type: Spontaneous
  Country: US (occurrence: US)
  Receive Date: 20130805
  Receipt Date: 20130905
  Transmission Date: 20140515
  Serious: Yes (Hospitalization)
  Sender: FDA-Public Use
  Company Number: US-GLAXOSMITHKLINE-A1001495A

PATIENT
  Age: 64 Year
  Sex: Female

DRUGS (1)
  1. AVANDIA [Suspect]
     Indication: DIABETES MELLITUS
     Dosage: 4MG TWICE PER DAY
     Route: 048
     Dates: start: 20000401, end: 20040302

REACTIONS (5)
  - Cardiac failure congestive [Not Recovered/Not Resolved]
  - Stent placement [Unknown]
  - Fluid retention [Unknown]
  - Dyspnoea [Unknown]
  - Chest pain [Unknown]
